FAERS Safety Report 12186205 (Version 1)
Quarter: 2016Q1

REPORT INFORMATION
  Report Type: Spontaneous
  Country: US (occurrence: US)
  Receive Date: 20160317
  Receipt Date: 20160317
  Transmission Date: 20160526
  Serious: Yes (Other)
  Sender: FDA-Public Use
  Company Number: US-ZYDUS-010445

PATIENT
  Age: 8 Year
  Sex: Female

DRUGS (1)
  1. ZONISAMIDE. [Suspect]
     Active Substance: ZONISAMIDE
     Indication: COMPLEX PARTIAL SEIZURES

REACTIONS (6)
  - Face oedema [Unknown]
  - Drug reaction with eosinophilia and systemic symptoms [Unknown]
  - Lymphadenopathy [Unknown]
  - Rash maculo-papular [Recovering/Resolving]
  - Pyrexia [Unknown]
  - Hepatosplenomegaly [Unknown]
